FAERS Safety Report 6686581-6 (Version None)
Quarter: 2010Q2

REPORT INFORMATION
  Report Type: 
  Country: None (occurrence: None)
  Receive Date: 20100414
  Receipt Date: 20100409
  Transmission Date: 20101027
  Serious: Yes (Disabling)
  Sender: FDA-Public Use
  Company Number: SP02857

PATIENT
  Age: 37 Year
  Sex: Female

DRUGS (1)
  1. METOZOLV ODT [Suspect]
     Indication: IMPAIRED GASTRIC EMPTYING
     Dosage: ORAL
     Route: 048
     Dates: start: 20100219, end: 20100224

REACTIONS (8)
  - CHEST DISCOMFORT [None]
  - DRUG EFFECT DECREASED [None]
  - DYSTONIA [None]
  - HYPERSENSITIVITY [None]
  - HYPOAESTHESIA [None]
  - MUSCLE SPASMS [None]
  - TACHYCARDIA [None]
  - TREMOR [None]
